FAERS Safety Report 4425563-1 (Version None)
Quarter: 2004Q3

REPORT INFORMATION
  Report Type: 
  Country: None (occurrence: None)
  Receive Date: 20040719
  Receipt Date: 20030929
  Transmission Date: 20050211
  Serious: Yes (Hospitalization)
  Sender: FDA-Public Use
  Company Number: 181315

PATIENT
  Age: 40 Year
  Sex: Female

DRUGS (3)
  1. AVONEX [Suspect]
     Indication: MULTIPLE SCLEROSIS
     Dosage: 30 MCG IM
     Route: 030
     Dates: start: 20030906, end: 20030901
  2. TOPAMAX [Concomitant]
  3. ZOLOFT [Concomitant]

REACTIONS (3)
  - CHEST PAIN [None]
  - FACIAL PAIN [None]
  - RASH [None]
